FAERS Safety Report 5523984-7 (Version None)
Quarter: 2007Q4

REPORT INFORMATION
  Report Type: 
  Country: None (occurrence: None)
  Receive Date: 20071121
  Receipt Date: 20071116
  Transmission Date: 20080405
  Serious: Yes (Life-Threatening, Other)
  Sender: FDA-Public Use
  Company Number: JP-ABBOTT-07P-087-0418256-00

PATIENT
  Age: 69 Year
  Sex: Male
  Weight: 50.3 kg

DRUGS (24)
  1. SEVOFLURANE [Suspect]
     Indication: INDUCTION OF ANAESTHESIA
     Dosage: 21.6 ML / 3%
     Route: 055
     Dates: start: 20070322, end: 20070322
  2. SEVOFLURANE [Suspect]
     Indication: MAINTENANCE OF ANAESTHESIA
     Dosage: NOT REPORTED
     Dates: start: 20070322, end: 20070322
  3. EPHEDRINE HYDROCHLORIDE [Suspect]
     Indication: BLOOD PRESSURE FLUCTUATION
     Route: 042
     Dates: start: 20070322, end: 20070322
  4. EPHEDRINE HYDROCHLORIDE [Suspect]
     Indication: BLOOD PRESSURE MANAGEMENT
  5. PROPOFOL [Concomitant]
     Indication: INDUCTION OF ANAESTHESIA
     Route: 055
     Dates: start: 20070322, end: 20070322
  6. PROPOFOL [Concomitant]
     Dosage: NOT REPORTED
  7. FENTANYL CITRATE [Concomitant]
     Indication: INDUCTION OF ANAESTHESIA
     Route: 050
     Dates: start: 20070322, end: 20070322
  8. VECURONIUM BROMIDE [Concomitant]
     Indication: HYPOTONIA
     Route: 042
     Dates: start: 20070322, end: 20070322
  9. VECURONIUM BROMIDE [Concomitant]
     Route: 042
     Dates: start: 20070322, end: 20070322
  10. REMIFENTANIL HYDROCHLORIDE [Concomitant]
     Indication: INDUCTION OF ANAESTHESIA
     Dosage: UNKNOWN
     Route: 042
  11. REMIFENTANIL HYDROCHLORIDE [Concomitant]
     Indication: MAINTENANCE OF ANAESTHESIA
     Dosage: NOT REPORTED
  12. NICORANDIL [Concomitant]
     Indication: DRUG USE FOR UNKNOWN INDICATION
     Route: 042
  13. NICORANDIL [Concomitant]
  14. DILTIAZEM HYDROCHLORIDE [Concomitant]
     Indication: DRUG USE FOR UNKNOWN INDICATION
     Route: 042
  15. DILTIAZEM HYDROCHLORIDE [Concomitant]
  16. OXYGEN [Concomitant]
     Indication: MAINTENANCE OF ANAESTHESIA
     Route: 055
     Dates: start: 20070322, end: 20070322
  17. AIR [Concomitant]
     Indication: DRUG USE FOR UNKNOWN INDICATION
     Route: 055
     Dates: start: 20070322, end: 20070322
  18. DOPAMINE HYDROCHLORIDE [Concomitant]
     Indication: DRUG USE FOR UNKNOWN INDICATION
     Route: 042
     Dates: start: 20070322, end: 20070322
  19. CALCIUM HYDROCHLORIDE [Concomitant]
     Indication: DRUG USE FOR UNKNOWN INDICATION
     Route: 042
     Dates: start: 20070322, end: 20070322
  20. MANNITOL [Concomitant]
     Indication: DRUG USE FOR UNKNOWN INDICATION
     Route: 042
     Dates: start: 20070322, end: 20070322
  21. IOHEXOL [Concomitant]
     Indication: CATHETER PLACEMENT
     Route: 008
     Dates: start: 20070322, end: 20070322
  22. INSULIN HUMAN [Concomitant]
     Indication: VENTRICULAR TACHYCARDIA
     Route: 050
     Dates: start: 20070322, end: 20070322
  23. INSULIN HUMAN [Concomitant]
     Indication: CARDIAC ARREST
  24. HEPARIN SODIUM [Concomitant]
     Indication: DRUG USE FOR UNKNOWN INDICATION
     Route: 042
     Dates: start: 20070322, end: 20070322

REACTIONS (2)
  - CARDIAC ARREST [None]
  - VENTRICULAR TACHYCARDIA [None]
